FAERS Safety Report 4527818-9 (Version None)
Quarter: 2004Q4

REPORT INFORMATION
  Report Type: 
  Country: None (occurrence: None)
  Receive Date: 20041123
  Receipt Date: 20040730
  Transmission Date: 20050328
  Serious: Yes (Hospitalization, Other)
  Sender: FDA-Public Use
  Company Number: ATO-04-0727(0)

PATIENT
  Age: 46 Year
  Sex: Female
  Weight: 84 kg

DRUGS (1)
  1. TRISENOX [Suspect]
     Indication: ACUTE PROMYELOCYTIC LEUKAEMIA
     Dosage: UNK (0.25 MG/KG, QD), IVI
     Route: 042
     Dates: start: 20040714

REACTIONS (3)
  - LEUKOCYTOSIS [None]
  - MUCOSAL INFLAMMATION [None]
  - PYREXIA [None]
